FAERS Safety Report 7399126-2 (Version None)
Quarter: 2011Q1

REPORT INFORMATION
  Report Type: 
  Country: None (occurrence: None)
  Receive Date: 20110301
  Receipt Date: 20100312
  Transmission Date: 20110831
  Serious: Yes (Other)
  Sender: FDA-Public Use
  Company Number: RB-04658-2010

PATIENT
  Age: 24 Month
  Sex: Female

DRUGS (1)
  1. SUBOXONE [Suspect]
     Indication: PRODUCT USED FOR UNKNOWN INDICATION
     Dosage: CHILD TOOK 1-8 MG SUBOXONE TABLET OUT OF CHILD SAFE CONTAINER AND HAD IN MOUTH
     Dates: start: 20100311, end: 20100311

REACTIONS (2)
  - ACCIDENTAL EXPOSURE [None]
  - NO ADVERSE EVENT [None]
